FAERS Safety Report 18046050 (Version 1)
Quarter: 2020Q3

REPORT INFORMATION
  Report Type: Spontaneous
  Country: GB (occurrence: GB)
  Receive Date: 20200720
  Receipt Date: 20200720
  Transmission Date: 20201103
  Serious: Yes (Life-Threatening)
  Sender: FDA-Public Use
  Company Number: GB-PERRIGO-20GB010225

PATIENT
  Sex: Male

DRUGS (8)
  1. ASDA HEARTBURN AND ACID REFLUX CONTROL 20MG GASTRO RESISTANT CAPSULES [ESOMEPRAZOLE] [Suspect]
     Active Substance: ESOMEPRAZOLE
     Indication: PRODUCT USED FOR UNKNOWN INDICATION
     Route: 048
  2. ACETYLSALICYLIC ACID [Concomitant]
     Active Substance: ASPIRIN
  3. AMITRIPTYLINE HYDROCHLORIDE. [Concomitant]
     Active Substance: AMITRIPTYLINE HYDROCHLORIDE
  4. ATORVASTATIN [Concomitant]
     Active Substance: ATORVASTATIN
  5. BISOPROLOL [Concomitant]
     Active Substance: BISOPROLOL
  6. EPLERENONE. [Concomitant]
     Active Substance: EPLERENONE
  7. TRAMADOL. [Concomitant]
     Active Substance: TRAMADOL
  8. RAMIPRIL. [Concomitant]
     Active Substance: RAMIPRIL

REACTIONS (1)
  - Anaphylactic reaction [Recovered/Resolved]
